FAERS Safety Report 8539746-2 (Version None)
Quarter: 2012Q3

REPORT INFORMATION
  Report Type: 
  Country: None (occurrence: None)
  Receive Date: 20120726
  Receipt Date: 20110902
  Transmission Date: 20120928
  Serious: No
  Sender: FDA-Public Use
  Company Number: US-ASTRAZENECA-2010SE01556

PATIENT
  Age: 32 Year
  Sex: Male
  Weight: 101.6 kg

DRUGS (7)
  1. SEROQUEL [Suspect]
     Dosage: 300-600 MG
     Route: 048
     Dates: start: 20080325, end: 20080522
  2. ATIVAN [Concomitant]
     Indication: ANXIETY
     Route: 048
     Dates: start: 20080921
  3. SEROQUEL [Suspect]
     Route: 048
  4. COGENTIN [Concomitant]
     Indication: ADVERSE DRUG REACTION
     Route: 048
     Dates: start: 20080921
  5. SEROQUEL [Suspect]
     Indication: SCHIZOAFFECTIVE DISORDER
     Dosage: 300-400 MG
     Route: 048
     Dates: start: 20080522, end: 20080909
  6. SEROQUEL [Suspect]
     Dosage: 300-600 MG
     Route: 048
     Dates: start: 20080921
  7. SEROQUEL [Suspect]
     Route: 048
     Dates: start: 20080101, end: 20100623

REACTIONS (17)
  - DRUG INTOLERANCE [None]
  - CHILLS [None]
  - PYREXIA [None]
  - MYALGIA [None]
  - CONFUSIONAL STATE [None]
  - DRUG WITHDRAWAL SYNDROME [None]
  - ANGER [None]
  - NAUSEA [None]
  - HEADACHE [None]
  - DRUG INEFFECTIVE [None]
  - DIARRHOEA [None]
  - SCHIZOAFFECTIVE DISORDER [None]
  - ARTHRALGIA [None]
  - WEIGHT INCREASED [None]
  - DRUG DOSE OMISSION [None]
  - INFLUENZA [None]
  - VOMITING [None]
